FAERS Safety Report 8907372 (Version 1)
Quarter: 2012Q4

REPORT INFORMATION
  Report Type: 
  Country: US (occurrence: US)
  Receive Date: 20121113
  Receipt Date: 20121113
  Transmission Date: 20130627
  Serious: No
  Sender: FDA-Public Use
  Company Number: US-AMGEN-USASP2012010456

PATIENT
  Age: 75 Year
  Sex: Female
  Weight: 88.44 kg

DRUGS (10)
  1. ENBREL [Suspect]
     Indication: PRODUCT USED FOR UNKNOWN INDICATION
     Dosage: 50 mg, qwk
  2. COREG CR [Concomitant]
     Dosage: 10 mg, UNK
  3. AMLODIPINE [Concomitant]
     Dosage: 2.5 mg, UNK
  4. RAMIPRIL [Concomitant]
     Dosage: 1.25 mg, UNK
  5. LEVOTHYROXIN [Concomitant]
     Dosage: 25 mug, UNK
  6. CRESTOR [Concomitant]
     Dosage: 10 mg, UNK
  7. PLAVIX [Concomitant]
     Dosage: 75 mg, UNK
  8. LUNESTA [Concomitant]
     Dosage: 1 mg, UNK
  9. ACIPHEX [Concomitant]
     Dosage: 20 mg, UNK
  10. VITAMIN D /00107901/ [Concomitant]
     Dosage: 400 UNK, UNK

REACTIONS (1)
  - Streptococcal infection [Unknown]
